FAERS Safety Report 12248297 (Version 1)
Quarter: 2016Q2

REPORT INFORMATION
  Report Type: Spontaneous
  Country: US (occurrence: None)
  Receive Date: 20160407
  Receipt Date: 20160407
  Transmission Date: 20160815
  Serious: Yes (Life-Threatening, Hospitalization, Disabling)
  Sender: FDA-Public Use
  Company Number: None

PATIENT
  Age: 32 Year
  Sex: Male
  Weight: 77.11 kg

DRUGS (7)
  1. DIAMOX SEQUELS [Concomitant]
     Active Substance: ACETAZOLAMIDE
  2. FENTYNAL [Concomitant]
     Active Substance: FENTANYL
  3. PEPCID [Concomitant]
     Active Substance: FAMOTIDINE
  4. PERCOCET [Concomitant]
     Active Substance: ACETAMINOPHEN\OXYCODONE HYDROCHLORIDE
  5. IVERMECTIN, 3 MG MFG EDENBRIDGE [Suspect]
     Active Substance: IVERMECTIN
     Indication: ACARODERMATITIS
     Dosage: 10 TABLET(S) 5 TABS PER WK X2 TAKEN BY MOUTH
     Route: 048
     Dates: start: 20160127, end: 20160203
  6. HEPARIN [Concomitant]
     Active Substance: HEPARIN SODIUM
  7. POTASSIUM [Concomitant]
     Active Substance: POTASSIUM

REACTIONS (6)
  - Cerebral disorder [None]
  - Feeling abnormal [None]
  - Fatigue [None]
  - Eye pain [None]
  - Headache [None]
  - Dizziness [None]

NARRATIVE: CASE EVENT DATE: 20160203
